FAERS Safety Report 17821632 (Version 1)
Quarter: 2020Q2

REPORT INFORMATION
  Report Type: Spontaneous
  Country: US (occurrence: US)
  Receive Date: 20200525
  Receipt Date: 20200525
  Transmission Date: 20200714
  Serious: No
  Sender: FDA-Public Use
  Company Number: US-CADILA HEALTHCARE LIMITED-US-ZYDUS-038206

PATIENT

DRUGS (2)
  1. PHENTERMINE. [Suspect]
     Active Substance: PHENTERMINE
     Indication: OVERWEIGHT
     Dosage: 15 MILLIGRAM,FREQUENCY :ONCE DAILY
     Route: 048
     Dates: start: 20190514, end: 20190528
  2. TOPIRAMATE. [Suspect]
     Active Substance: TOPIRAMATE
     Indication: OVERWEIGHT
     Dosage: 25 MILLIGRAM,FREQUENCY :TWICE DAILY
     Route: 048
     Dates: start: 20190514, end: 20190528

REACTIONS (5)
  - Paraesthesia [Not Recovered/Not Resolved]
  - Product use in unapproved indication [Recovered/Resolved]
  - Diarrhoea [Recovered/Resolved]
  - Abdominal pain upper [Not Recovered/Not Resolved]
  - Facial paralysis [Unknown]

NARRATIVE: CASE EVENT DATE: 20190514
